APPROVED DRUG PRODUCT: NORETHINDRONE AND ETHINYL ESTRADIOL
Active Ingredient: ETHINYL ESTRADIOL; NORETHINDRONE
Strength: 0.035MG,0.035MG,0.035MG;0.5MG,0.75MG,1MG
Dosage Form/Route: TABLET;ORAL-28
Application: A200486 | Product #001
Applicant: MYLAN LABORATORIES LTD
Approved: Dec 28, 2015 | RLD: No | RS: No | Type: DISCN